FAERS Safety Report 11456149 (Version 1)
Quarter: 2015Q3

REPORT INFORMATION
  Report Type: Spontaneous
  Country: FR (occurrence: FR)
  Receive Date: 20150903
  Receipt Date: 20150903
  Transmission Date: 20151125
  Serious: Yes (Other)
  Sender: FDA-Public Use
  Company Number: FR-FRESENIUS KABI-FK201504205

PATIENT
  Age: 65 Year
  Sex: Male

DRUGS (1)
  1. BLEOMYCIN [Suspect]
     Active Substance: BLEOMYCIN SULFATE
     Indication: KAPOSI^S SARCOMA
     Route: 030
     Dates: start: 201406

REACTIONS (3)
  - Tinnitus [Recovered/Resolved]
  - Flagellate dermatitis [Recovered/Resolved]
  - Nail discolouration [Recovered/Resolved]
